FAERS Safety Report 23248420 (Version 2)
Quarter: 2023Q4

REPORT INFORMATION
  Report Type: Spontaneous
  Country: JP (occurrence: JP)
  Receive Date: 20231201
  Receipt Date: 20231219
  Transmission Date: 20240109
  Serious: Yes (Other)
  Sender: FDA-Public Use
  Company Number: JP-002147023-NVSJ2023JP010615

PATIENT
  Age: 71 Year
  Sex: Female
  Weight: 61 kg

DRUGS (4)
  1. LUTATHERA [Suspect]
     Active Substance: LUTETIUM OXODOTREOTIDE LU-177
     Indication: Neuroendocrine tumour of the rectum
     Dosage: UNK
     Route: 042
     Dates: start: 20220908, end: 20220908
  2. LUTATHERA [Suspect]
     Active Substance: LUTETIUM OXODOTREOTIDE LU-177
     Dosage: APPROXIMATELY 50% DOSE REDUCTION
     Route: 042
     Dates: start: 20221117, end: 20221117
  3. LUTATHERA [Suspect]
     Active Substance: LUTETIUM OXODOTREOTIDE LU-177
     Dosage: APPROXIMATELY 50% DOSE REDUCTION
     Route: 042
     Dates: start: 20230112, end: 20230112
  4. LUTATHERA [Suspect]
     Active Substance: LUTETIUM OXODOTREOTIDE LU-177
     Dosage: APPROXIMATELY 50% DOSE REDUCTION
     Route: 042
     Dates: start: 20230316, end: 20230316

REACTIONS (6)
  - Hydronephrosis [Recovering/Resolving]
  - Concomitant disease aggravated [Recovering/Resolving]
  - Neuroendocrine tumour of the rectum [Unknown]
  - Malignant neoplasm progression [Unknown]
  - Drug ineffective [Unknown]
  - Inappropriate schedule of product administration [Unknown]

NARRATIVE: CASE EVENT DATE: 20221027
